FAERS Safety Report 9214012 (Version 1)
Quarter: 2013Q2

REPORT INFORMATION
  Report Type: Spontaneous
  Country: MT (occurrence: MT)
  Receive Date: 20130405
  Receipt Date: 20130405
  Transmission Date: 20140414
  Serious: Yes (Death)
  Sender: FDA-Public Use
  Company Number: MT-SANOFI-AVENTIS-2013SA033512

PATIENT
  Age: 75 Year
  Sex: Female

DRUGS (1)
  1. STILNOX [Suspect]
     Indication: INSOMNIA
     Route: 065

REACTIONS (4)
  - Fall [Fatal]
  - Overdose [Unknown]
  - Hallucination [Unknown]
  - Abnormal behaviour [Unknown]
